FAERS Safety Report 25371069 (Version 1)
Quarter: 2025Q2

REPORT INFORMATION
  Report Type: Spontaneous
  Country: US (occurrence: US)
  Receive Date: 20250529
  Receipt Date: 20250529
  Transmission Date: 20250716
  Serious: Yes (Other)
  Sender: GLAXOSMITHKLINE
  Company Number: US-GSK-US2025064794

PATIENT

DRUGS (2)
  1. ZEJULA [Suspect]
     Active Substance: NIRAPARIB
     Indication: Ovarian cancer
  2. ZEJULA [Suspect]
     Active Substance: NIRAPARIB
     Dates: start: 20250331

REACTIONS (4)
  - Neuropathy peripheral [Recovering/Resolving]
  - Blood glucose increased [Recovering/Resolving]
  - Nausea [Unknown]
  - Weight decreased [Unknown]
